FAERS Safety Report 20142430 (Version 2)
Quarter: 2021Q4

REPORT INFORMATION
  Report Type: Spontaneous
  Country: US (occurrence: US)
  Receive Date: 20211202
  Receipt Date: 20211216
  Transmission Date: 20220303
  Serious: Yes (Death, Hospitalization)
  Sender: FDA-Public Use
  Company Number: US-TEVA-2021-US-1982309

PATIENT
  Age: 76 Year
  Sex: Male

DRUGS (7)
  1. METHYLPREDNISOLONE [Suspect]
     Active Substance: METHYLPREDNISOLONE
     Indication: Organising pneumonia
     Dosage: 46 MILLIGRAM DAILY;
     Route: 065
  2. METHYLPREDNISOLONE [Suspect]
     Active Substance: METHYLPREDNISOLONE
     Indication: Pulmonary toxicity
     Dosage: 1000 MILLIGRAM DAILY;
     Route: 065
  3. METHYLPREDNISOLONE [Suspect]
     Active Substance: METHYLPREDNISOLONE
     Indication: Sarcoidosis
  4. ACYCLOVIR [Suspect]
     Active Substance: ACYCLOVIR
     Indication: Herpes simplex meningoencephalitis
     Dosage: 30 MG/KG DAILY;
     Route: 065
  5. CASPOFUNGIN [Concomitant]
     Active Substance: CASPOFUNGIN
     Indication: Candida infection
     Route: 065
  6. CASPOFUNGIN [Concomitant]
     Active Substance: CASPOFUNGIN
     Indication: Candida infection
  7. CASPOFUNGIN [Concomitant]
     Active Substance: CASPOFUNGIN
     Indication: Urinary tract candidiasis

REACTIONS (7)
  - Herpes simplex meningoencephalitis [Fatal]
  - Drug ineffective [Fatal]
  - Candida infection [Unknown]
  - Staphylococcal infection [Unknown]
  - Pneumonia [Unknown]
  - Candida infection [Unknown]
  - Urinary tract candidiasis [Unknown]
